FAERS Safety Report 13785947 (Version 2)
Quarter: 2017Q3

REPORT INFORMATION
  Report Type: Spontaneous
  Country: IT (occurrence: IT)
  Receive Date: 20170725
  Receipt Date: 20170818
  Transmission Date: 20171127
  Serious: Yes (Hospitalization)
  Sender: FDA-Public Use
  Company Number: IT-VALIDUS PHARMACEUTICALS LLC-IT-2017VAL001097

PATIENT
  Age: 38 Year
  Sex: Female

DRUGS (2)
  1. SENNA                              /00142201/ [Suspect]
     Active Substance: SENNA LEAF
     Indication: LAXATIVE SUPPORTIVE CARE
     Dosage: UNK
  2. FUROSEMIDE. [Suspect]
     Active Substance: FUROSEMIDE
     Indication: DIURETIC THERAPY
     Dosage: UNK

REACTIONS (11)
  - Muscular weakness [Recovered/Resolved]
  - Conduction disorder [Recovered/Resolved]
  - Toxicity to various agents [Recovered/Resolved]
  - Myopathy [Recovered/Resolved]
  - Familial periodic paralysis [Recovered/Resolved]
  - Drug abuse [Recovered/Resolved]
  - Drug interaction [Recovered/Resolved]
  - Rhabdomyolysis [Recovered/Resolved]
  - Myalgia [Recovered/Resolved]
  - Blood creatine phosphokinase increased [Unknown]
  - Hypokalaemia [Recovered/Resolved]
